FAERS Safety Report 8054316-0 (Version None)
Quarter: 2012Q1

REPORT INFORMATION
  Report Type: 
  Country: None (occurrence: None)
  Receive Date: 20120118
  Receipt Date: 20120112
  Transmission Date: 20120608
  Serious: Yes (Hospitalization)
  Sender: FDA-Public Use
  Company Number: PHEH2012US001318

PATIENT
  Sex: Female
  Weight: 91.61 kg

DRUGS (4)
  1. COREG [Concomitant]
     Dosage: 80 MG, UNK
  2. BENAZEPRIL HYDROCHLORIDE [Concomitant]
     Dosage: 40-80 MG
  3. MICARDIS [Concomitant]
     Dosage: 80 MG, UNK
  4. VALTURNA [Suspect]
     Indication: HYPERTENSION
     Dosage: 1 DF (300/320 MG), PER DAY
     Route: 048
     Dates: start: 20091101

REACTIONS (1)
  - CEREBROVASCULAR ACCIDENT [None]
